FAERS Safety Report 8359742-8 (Version None)
Quarter: 2012Q2

REPORT INFORMATION
  Report Type: 
  Country: None (occurrence: None)
  Receive Date: 20120515
  Receipt Date: 20120511
  Transmission Date: 20120825
  Serious: Yes (Hospitalization)
  Sender: FDA-Public Use
  Company Number: US-BAYER-2012-047019

PATIENT
  Age: 36 Year
  Sex: Female

DRUGS (7)
  1. YAZ [Suspect]
     Dosage: UNK
     Dates: start: 20100101, end: 20100501
  2. VALTREX [Concomitant]
  3. DROSPIRENONE AND ETHINYL ESTRADIOL [Suspect]
     Dosage: UNK
     Dates: start: 20100611
  4. TERBINAFINE HCL [Concomitant]
     Dosage: 250 MG, UNK
     Route: 048
  5. YAZ [Suspect]
     Dosage: UNK
     Dates: start: 20081001, end: 20091101
  6. LAMISIL [Concomitant]
  7. ANTI-INFLAMMATORIES [Concomitant]

REACTIONS (1)
  - PULMONARY EMBOLISM [None]
